FAERS Safety Report 6599764-0 (Version None)
Quarter: 2010Q1

REPORT INFORMATION
  Report Type: 
  Country: None (occurrence: None)
  Receive Date: 20100216
  Receipt Date: 20100203
  Transmission Date: 20100710
  Serious: No
  Sender: FDA-Public Use
  Company Number: URSO-2007-003

PATIENT
  Sex: Male

DRUGS (6)
  1. URSODIOL [Suspect]
     Indication: HEPATIC CIRRHOSIS
     Dosage: 300MG PO
     Route: 048
     Dates: start: 20060127, end: 20061226
  2. BAYMYCARD (NISOLDIPINE) [Concomitant]
  3. FAMOTIDINE [Concomitant]
  4. LACTULOSE [Concomitant]
  5. MUCOSOLVAN L (AMBROXOL HYDROCHLORIDE) [Concomitant]
  6. CLARITHROMYCIN [Concomitant]

REACTIONS (2)
  - ERYTHEMA MULTIFORME [None]
  - PRURITUS GENERALISED [None]
